FAERS Safety Report 9345995 (Version 1)
Quarter: 2013Q2

REPORT INFORMATION
  Report Type: Spontaneous
  Country: US (occurrence: US)
  Receive Date: 20130613
  Receipt Date: 20130613
  Transmission Date: 20140414
  Serious: Yes (Hospitalization, Other)
  Sender: FDA-Public Use
  Company Number: GXBR2013US001201

PATIENT
  Age: 52 Year
  Sex: Male

DRUGS (3)
  1. FLUOXETINE [Suspect]
     Dosage: UNK DF, UNK
  2. MIRTAZAPINE TABLETS [Suspect]
     Dosage: UNK DF, UNK
     Dates: start: 20110711
  3. RESTORIL [Suspect]
     Dosage: UNK DF, NO TREATMENT

REACTIONS (12)
  - Spinal cord compression [Unknown]
  - Myelomalacia [Unknown]
  - Serotonin syndrome [Unknown]
  - Wrong drug administered [Unknown]
  - Gait disturbance [Unknown]
  - Fall [Unknown]
  - Hypoaesthesia [Not Recovered/Not Resolved]
  - Arthralgia [Not Recovered/Not Resolved]
  - Pain [Not Recovered/Not Resolved]
  - Gastrointestinal disorder [Not Recovered/Not Resolved]
  - Bladder disorder [Not Recovered/Not Resolved]
  - Speech disorder [Unknown]
